FAERS Safety Report 13820394 (Version 1)
Quarter: 2017Q3

REPORT INFORMATION
  Report Type: Spontaneous
  Country: US (occurrence: US)
  Receive Date: 20170801
  Receipt Date: 20170801
  Transmission Date: 20171127
  Serious: No
  Sender: FDA-Public Use
  Company Number: US-ASTRAZENECA-2017SE69934

PATIENT
  Age: 852 Month
  Sex: Female
  Weight: 113.4 kg

DRUGS (2)
  1. SYMBICORT [Suspect]
     Active Substance: BUDESONIDE\FORMOTEROL FUMARATE DIHYDRATE
     Indication: ASTHMA
     Dosage: 160/4.5MCG TWO INHALATIONS TWICE DAILY
     Route: 055
     Dates: start: 201705
  2. LEVOTHYROXINE. [Concomitant]
     Active Substance: LEVOTHYROXINE
     Indication: THYROID DISORDER
     Route: 048

REACTIONS (3)
  - Dysphonia [Not Recovered/Not Resolved]
  - Intentional product misuse [Unknown]
  - Gingival disorder [Unknown]

NARRATIVE: CASE EVENT DATE: 201706
